FAERS Safety Report 6803565-5 (Version None)
Quarter: 2010Q2

REPORT INFORMATION
  Report Type: 
  Country: None (occurrence: None)
  Receive Date: 20100628
  Receipt Date: 20100521
  Transmission Date: 20101027
  Serious: Yes (Other)
  Sender: FDA-Public Use
  Company Number: US-MERCK-1005USA03865

PATIENT
  Age: 30 Month
  Sex: Female

DRUGS (1)
  1. SINGULAIR [Suspect]
     Indication: SEASONAL ALLERGY
     Route: 048

REACTIONS (7)
  - ABNORMAL BEHAVIOUR [None]
  - AGITATION [None]
  - DYSPNOEA [None]
  - NERVOUSNESS [None]
  - NIGHTMARE [None]
  - PHYSICAL ASSAULT [None]
  - SCREAMING [None]
